FAERS Safety Report 11644270 (Version 1)
Quarter: 2015Q4

REPORT INFORMATION
  Report Type: Spontaneous
  Country: US (occurrence: None)
  Receive Date: 20151019
  Receipt Date: 20151019
  Transmission Date: 20160304
  Serious: Yes (Hospitalization)
  Sender: FDA-Public Use
  Company Number: None

PATIENT
  Age: 51 Year
  Sex: Male
  Weight: 93.44 kg

DRUGS (1)
  1. SALINE AND ALOE NASAY SPRAY NATURADE O F ORANGE CA [Suspect]
     Active Substance: SODIUM CHLORIDE

REACTIONS (1)
  - Ventricular tachycardia [None]

NARRATIVE: CASE EVENT DATE: 20150821
